FAERS Safety Report 10350542 (Version 1)
Quarter: 2014Q3

REPORT INFORMATION
  Report Type: Spontaneous
  Country: AU (occurrence: AU)
  Receive Date: 20140730
  Receipt Date: 20140730
  Transmission Date: 20150326
  Serious: No
  Sender: FDA-Public Use
  Company Number: AU-009507513-1407AUS010563

PATIENT
  Sex: Male

DRUGS (2)
  1. NEILMED NASOGEL [Suspect]
     Active Substance: SODIUM CHLORIDE
     Indication: NASAL POLYPS
     Route: 045
  2. DIPROSONE [Suspect]
     Active Substance: BETAMETHASONE DIPROPIONATE
     Indication: NASAL POLYPS
     Dosage: 1 CM ADDED AND SHAKEN
     Route: 045

REACTIONS (2)
  - Drug administration error [Unknown]
  - Incorrect route of drug administration [Unknown]
